FAERS Safety Report 8507124-8 (Version None)
Quarter: 2012Q3

REPORT INFORMATION
  Report Type: 
  Country: None (occurrence: None)
  Receive Date: 20120703
  Receipt Date: 20120619
  Transmission Date: 20120928
  Serious: Yes (Hospitalization)
  Sender: FDA-Public Use
  Company Number: ENTC2012-0265

PATIENT
  Age: 82 Year
  Sex: Male

DRUGS (2)
  1. STALEVO 50 [Suspect]
     Indication: PARKINSON'S DISEASE
     Dosage: 800 MG, 4 IN 1 D, ORAL
     Route: 048
     Dates: end: 20120607
  2. ROPINIROLE [Concomitant]

REACTIONS (2)
  - PNEUMONIA [None]
  - WRONG TECHNIQUE IN DRUG USAGE PROCESS [None]
